FAERS Safety Report 8507688-4 (Version None)
Quarter: 2012Q3

REPORT INFORMATION
  Report Type: 
  Country: None (occurrence: None)
  Receive Date: 20120713
  Receipt Date: 20120703
  Transmission Date: 20120928
  Serious: Yes (Other)
  Sender: FDA-Public Use
  Company Number: RS-ACCORD-014047

PATIENT
  Age: 2 Month
  Sex: Male
  Weight: 3.45 kg

DRUGS (3)
  1. DEXAMETHASONE SODIUM POSPHATE [Suspect]
     Dates: end: 20100701
  2. ETOPOSIDE [Suspect]
     Dosage: (45 MG) 4 DOSES TWICE A WK FOR FIRST 2 WKS, THEN WEEKLY FOR FIRST 2 MONTHS. RECEIVED 5 DOSES
  3. CYCLOSPORINE [Suspect]
     Dates: end: 20100701

REACTIONS (6)
  - OFF LABEL USE [None]
  - MITRAL VALVE INCOMPETENCE [None]
  - FEBRILE NEUTROPENIA [None]
  - SEPSIS [None]
  - LEFT VENTRICULAR HYPERTROPHY [None]
  - DIARRHOEA [None]
